FAERS Safety Report 10372929 (Version 2)
Quarter: 2014Q3

REPORT INFORMATION
  Report Type: Spontaneous
  Country: US (occurrence: US)
  Receive Date: 20140808
  Receipt Date: 20140808
  Transmission Date: 20150326
  Serious: Yes (Hospitalization)
  Sender: FDA-Public Use
  Company Number: US-BRISTOL-MYERS SQUIBB COMPANY-19806280

PATIENT
  Age: 49 Year
  Sex: Female

DRUGS (1)
  1. SPRYCEL [Suspect]
     Active Substance: DASATINIB
     Indication: ILL-DEFINED DISORDER
     Dosage: TAKE 1 TABLET BY MOUTH FOR 14DAYS FOLLOWED BY 1 WEEK REST
     Route: 048

REACTIONS (3)
  - Adverse event [Unknown]
  - Eye disorder [Unknown]
  - Skin exfoliation [Unknown]
